FAERS Safety Report 5954333-8 (Version None)
Quarter: 2008Q4

REPORT INFORMATION
  Report Type: 
  Country: None (occurrence: None)
  Receive Date: 20081117
  Receipt Date: 20080206
  Transmission Date: 20090506
  Serious: No
  Sender: FDA-Public Use
  Company Number: US-AMGEN-KDL258787

PATIENT
  Sex: Female
  Weight: 104.4 kg

DRUGS (10)
  1. ENBREL [Suspect]
     Indication: PSORIASIS
     Route: 058
     Dates: start: 20071128, end: 20080105
  2. NORGESTIMATE AND ETHINYL ESTRADIOL [Concomitant]
  3. SEROQUEL [Concomitant]
  4. ADDERALL 10 [Concomitant]
  5. STRATTERA [Concomitant]
  6. CLARITIN [Concomitant]
  7. REMERON [Concomitant]
  8. SYNTHROID [Concomitant]
  9. KLONOPIN [Concomitant]
  10. PROVIGIL [Concomitant]

REACTIONS (1)
  - INJECTION SITE ERYTHEMA [None]
